FAERS Safety Report 5262483-7 (Version None)
Quarter: 2007Q1

REPORT INFORMATION
  Report Type: 
  Country: None (occurrence: None)
  Receive Date: 20070312
  Receipt Date: 20070228
  Transmission Date: 20070707
  Serious: Yes (Other)
  Sender: FDA-Public Use
  Company Number: 2006SE06763

PATIENT
  Age: 4 Year
  Sex: Female

DRUGS (2)
  1. LOSEC [Suspect]
     Indication: GASTROOESOPHAGEAL REFLUX DISEASE
     Route: 048
     Dates: start: 20041001
  2. LOSEC [Suspect]
     Route: 048
     Dates: start: 20061208

REACTIONS (1)
  - HEARING IMPAIRED [None]
